FAERS Safety Report 18188970 (Version 1)
Quarter: 2020Q3

REPORT INFORMATION
  Report Type: Spontaneous
  Country: DE (occurrence: DE)
  Receive Date: 20200824
  Receipt Date: 20200824
  Transmission Date: 20201103
  Serious: Yes (Hospitalization)
  Sender: FDA-Public Use
  Company Number: DE-TEVA-2020-DE-1816950

PATIENT
  Age: 80 Year
  Sex: Male

DRUGS (12)
  1. OMEPRAZOL [Concomitant]
     Active Substance: OMEPRAZOLE
     Dosage: 20 MILLIGRAM DAILY;  1?0?0?0
  2. RETACRIT 2000I.E./0,6ML INJEKTIONSLOSUNG [Concomitant]
     Dosage: 2000 IU / WEEK, 2X,
  3. RAMIPRIL. [Suspect]
     Active Substance: RAMIPRIL
     Dosage: 5 MILLIGRAM DAILY; 1?0?1?0
     Route: 065
  4. AMLODIPIN [Concomitant]
     Active Substance: AMLODIPINE BESYLATE
     Dosage: 5 MILLIGRAM DAILY;  1?0?0?0
  5. EISEN(II) [Concomitant]
     Dosage: 100 MILLIGRAM DAILY;  1?0?0?0
  6. SITAGLIPTIN [Concomitant]
     Active Substance: SITAGLIPTIN
     Dosage: .5 DOSAGE FORMS DAILY; 50 MG, 0.5?0?0?0,
  7. ACETYLSALICYLSAURE [Concomitant]
     Active Substance: ASPIRIN
     Dosage: 100 MILLIGRAM DAILY; 1?0?0?0
  8. TORASEMID [Suspect]
     Active Substance: TORSEMIDE
     Dosage: 10 MG, 1?0.5?0?0
     Route: 065
  9. SIMVASTATIN. [Concomitant]
     Active Substance: SIMVASTATIN
     Dosage: 20 MILLIGRAM DAILY; 1?0?0?0
  10. COLECALCIFEROL (VITAMIN D) [Concomitant]
     Dosage: 20000 IU / WEEK, 1X, TABLETS
  11. BICANORM [Concomitant]
     Active Substance: SODIUM BICARBONATE
     Dosage: 1 GRAM DAILY;  0?1?0?0
  12. ALLOPURINOL. [Concomitant]
     Active Substance: ALLOPURINOL
     Dosage: 100 MILLIGRAM DAILY; 1?0?0?0

REACTIONS (4)
  - Condition aggravated [Not Recovered/Not Resolved]
  - Diarrhoea [Not Recovered/Not Resolved]
  - Renal impairment [Not Recovered/Not Resolved]
  - Product prescribing error [Unknown]
